FAERS Safety Report 11851953 (Version 1)
Quarter: 2015Q4

REPORT INFORMATION
  Report Type: Spontaneous
  Country: DE (occurrence: DE)
  Receive Date: 20151218
  Receipt Date: 20151218
  Transmission Date: 20160305
  Serious: Yes (Death, Life-Threatening, Hospitalization)
  Sender: FDA-Public Use
  Company Number: DE-ASTRAZENECA-2015SF27603

PATIENT
  Age: 28903 Day
  Sex: Male
  Weight: 74 kg

DRUGS (7)
  1. SEROQUEL [Suspect]
     Active Substance: QUETIAPINE FUMARATE
     Indication: HALLUCINATION
     Dosage: 150 MG
     Route: 048
  2. SEROQUEL [Suspect]
     Active Substance: QUETIAPINE FUMARATE
     Indication: HALLUCINATION
     Dosage: DAILY
     Route: 048
     Dates: start: 20150413, end: 201510
  3. SEROQUEL [Suspect]
     Active Substance: QUETIAPINE FUMARATE
     Indication: HALLUCINATION
     Route: 048
     Dates: start: 20151020, end: 20151022
  4. NOVALGIN [Concomitant]
     Active Substance: METAMIZOLE SODIUM
  5. CLOZAPINE. [Suspect]
     Active Substance: CLOZAPINE
     Indication: HALLUCINATION
     Route: 048
     Dates: start: 20151020, end: 20151022
  6. LEUPRORELIN [Concomitant]
     Active Substance: LEUPROLIDE ACETATE
  7. L DOPA [Concomitant]
     Active Substance: LEVODOPA

REACTIONS (5)
  - Aphasia [Fatal]
  - Gait disturbance [Fatal]
  - Pneumonia [Fatal]
  - Dysphagia [Fatal]
  - Hallucination [Unknown]

NARRATIVE: CASE EVENT DATE: 20151022
